FAERS Safety Report 12248562 (Version 2)
Quarter: 2016Q2

REPORT INFORMATION
  Report Type: Spontaneous
  Country: FR (occurrence: FR)
  Receive Date: 20160408
  Receipt Date: 20160425
  Transmission Date: 20160815
  Serious: Yes (Hospitalization)
  Sender: FDA-Public Use
  Company Number: FR-FERRINGPH-2016FE01482

PATIENT

DRUGS (2)
  1. PICOPREP [Suspect]
     Active Substance: CITRIC ACID MONOHYDRATE\MAGNESIUM OXIDE\SODIUM PICOSULFATE
     Indication: BOWEL PREPARATION
     Dosage: 1 SACHET
     Route: 048
     Dates: start: 20160306, end: 20160306
  2. DIFFU K [Concomitant]
     Active Substance: POTASSIUM CHLORIDE
     Indication: HYPOKALAEMIA
     Dosage: 1200 MG, 3 TIMES DAILY
     Route: 065

REACTIONS (7)
  - Fall [Recovered/Resolved]
  - Vomiting [Recovered/Resolved]
  - Product use issue [Recovered/Resolved]
  - Hyponatraemia [Recovered/Resolved]
  - Hypochloraemia [Recovered/Resolved]
  - Malaise [Recovered/Resolved]
  - Renal failure [Recovered/Resolved]

NARRATIVE: CASE EVENT DATE: 20160306
